FAERS Safety Report 11058505 (Version 1)
Quarter: 2015Q2

REPORT INFORMATION
  Report Type: Report from Study
  Country: US (occurrence: None)
  Receive Date: 20150420
  Receipt Date: 20150420
  Transmission Date: 20150821
  Serious: No
  Sender: FDA-Public Use
  Company Number: AEGR001103

PATIENT
  Age: 79 Year
  Sex: Female

DRUGS (15)
  1. AMLODIPINE (AMLODIPINE BESILATE) [Concomitant]
  2. NITROGLYCERINE (GLYCERYL TRINITRATE) [Concomitant]
  3. OMEPRAZOLE. [Concomitant]
     Active Substance: OMEPRAZOLE
  4. FERROUS SULFATE [Concomitant]
     Active Substance: FERROUS SULFATE\FERROUS SULFATE, DRIED
  5. IBUPROFEN. [Concomitant]
     Active Substance: IBUPROFEN
  6. LISINOPRIL. [Concomitant]
     Active Substance: LISINOPRIL
  7. ALPRAZOLAM. [Concomitant]
     Active Substance: ALPRAZOLAM
  8. JUXTAPID [Suspect]
     Active Substance: LOMITAPIDE MESYLATE
     Indication: TYPE IIA HYPERLIPIDAEMIA
     Route: 048
     Dates: start: 20130827, end: 20131030
  9. ROSUVASTATIN [Concomitant]
     Active Substance: ROSUVASTATIN
  10. ALBUTEROL (SALBUTAMOL SULFATE) [Concomitant]
  11. OMEGA 3 (FISH OIL) [Concomitant]
     Active Substance: OMEGA-3 FATTY ACIDS
  12. SPIRIVA (TIOTROPIUM BROMIDE) [Concomitant]
  13. VITAMIN E (TOPCOPHERYL ACETATE) [Concomitant]
  14. EZETIMIBE. [Concomitant]
     Active Substance: EZETIMIBE
  15. FOLIC ACID. [Concomitant]
     Active Substance: FOLIC ACID

REACTIONS (1)
  - Arthralgia [None]

NARRATIVE: CASE EVENT DATE: 20141202
